FAERS Safety Report 20196900 (Version 6)
Quarter: 2022Q3

REPORT INFORMATION
  Report Type: Spontaneous
  Country: US (occurrence: US)
  Receive Date: 20211217
  Receipt Date: 20220922
  Transmission Date: 20221027
  Serious: Yes (Hospitalization, Other)
  Sender: FDA-Public Use
  Company Number: US-BIOVITRUM-2021US11550

PATIENT
  Sex: Male

DRUGS (2)
  1. KINERET [Suspect]
     Active Substance: ANAKINRA
     Indication: Rheumatoid arthritis
     Dates: start: 20211129
  2. KINERET [Suspect]
     Active Substance: ANAKINRA
     Dates: start: 20211119

REACTIONS (15)
  - Pericardial effusion [Unknown]
  - Pulmonary oedema [Unknown]
  - Diarrhoea [Unknown]
  - Mass [Unknown]
  - Erythema [Unknown]
  - Pain [Unknown]
  - Insomnia [Unknown]
  - Hypoaesthesia [Unknown]
  - COVID-19 [Unknown]
  - Dyspnoea [Unknown]
  - Chest pain [Unknown]
  - Musculoskeletal stiffness [Unknown]
  - Injection site pain [Unknown]
  - Rash [Unknown]
  - Drug ineffective [Unknown]
